FAERS Safety Report 5510361-8 (Version None)
Quarter: 2007Q4

REPORT INFORMATION
  Report Type: 
  Country: None (occurrence: None)
  Receive Date: 20071108
  Receipt Date: 20071031
  Transmission Date: 20080405
  Serious: Yes (Other)
  Sender: FDA-Public Use
  Company Number: IT-PFIZER INC-2007092495

PATIENT
  Sex: Male

DRUGS (2)
  1. CABERGOLINE [Suspect]
     Indication: PARKINSON'S DISEASE
     Route: 048
     Dates: start: 20060101, end: 20070201
  2. SINEMET [Concomitant]
     Dates: start: 20041030, end: 20071030

REACTIONS (1)
  - PATHOLOGICAL GAMBLING [None]
